FAERS Safety Report 24456203 (Version 2)
Quarter: 2024Q4

REPORT INFORMATION
  Report Type: Spontaneous
  Country: MX (occurrence: MX)
  Receive Date: 20241017
  Receipt Date: 20241018
  Transmission Date: 20250114
  Serious: No
  Sender: ROCHE
  Company Number: MX-ROCHE-3492843

PATIENT
  Age: 20 Year
  Sex: Female
  Weight: 58.0 kg

DRUGS (1)
  1. MABTHERA [Suspect]
     Active Substance: RITUXIMAB
     Indication: Optic neuritis
     Dosage: THE LAST TREATMENT APPLICATION WAS ON 10/DEC/2023
     Route: 041
     Dates: start: 2022

REACTIONS (2)
  - Off label use [Unknown]
  - Anxiety [Recovered/Resolved]

NARRATIVE: CASE EVENT DATE: 20220101
